FAERS Safety Report 7632495-4 (Version None)
Quarter: 2011Q3

REPORT INFORMATION
  Report Type: 
  Country: None (occurrence: None)
  Receive Date: 20110725
  Receipt Date: 20100920
  Transmission Date: 20111222
  Serious: Yes (Hospitalization)
  Sender: FDA-Public Use
  Company Number: US-BRISTOL-MYERS SQUIBB COMPANY-15294879

PATIENT
  Age: 74 Year
  Sex: Female
  Weight: 81 kg

DRUGS (9)
  1. WARFARIN SODIUM [Suspect]
  2. ADVAIR DISKUS 100/50 [Concomitant]
     Dosage: 1 DF=250/50 UNITS NOT SPECIFIED, INHALER.
  3. SYNTHROID [Concomitant]
  4. COUMADIN [Suspect]
     Dosage: 1 DF=2.5 MG TABLET IN HALF DOSE AT TEH TIME OF REPORT
     Dates: start: 20100701
  5. NEXIUM [Concomitant]
  6. MIRALAX [Concomitant]
  7. HYDROCODONE BITARTRATE [Concomitant]
     Dosage: 1 DF=7.5/500 MG .
  8. MOBIC [Concomitant]
  9. AVAPRO [Concomitant]

REACTIONS (4)
  - OEDEMA PERIPHERAL [None]
  - CONTUSION [None]
  - ALOPECIA [None]
  - PAIN [None]
